FAERS Safety Report 8804243 (Version 2)
Quarter: 2012Q4

REPORT INFORMATION
  Report Type: 
  Country: RO (occurrence: RO)
  Receive Date: 20120924
  Receipt Date: 20121001
  Transmission Date: 20130627
  Serious: Yes (Other)
  Sender: FDA-Public Use
  Company Number: RO-UCBSA-066787

PATIENT
  Age: 65 Year
  Sex: Female

DRUGS (10)
  1. XYZAL [Suspect]
     Indication: ANAPHYLACTIC REACTION
     Route: 048
     Dates: start: 20120714, end: 20120715
  2. XYZAL [Suspect]
     Indication: ANAPHYLACTIC REACTION
     Dates: start: 2012
  3. OMEZ [Concomitant]
     Dosage: UNKNOWN
     Dates: start: 2010, end: 2012
  4. METFORMIN [Concomitant]
     Dosage: UNKNOWN
     Dates: start: 201205, end: 201207
  5. PREDUCTAL [Concomitant]
     Dosage: UNKNOWN
     Dates: start: 2010, end: 2012
  6. ATACAND [Concomitant]
     Dosage: UNKNOWN
     Dates: start: 2010, end: 2012
  7. CARVEDILOL [Concomitant]
     Dosage: UNKNOWN
     Dates: start: 2010, end: 2012
  8. THROMBOASS [Concomitant]
     Dosage: UNKNOWN
  9. DIUREX [Concomitant]
     Dosage: UNKNOWN
  10. ROSUCARD [Concomitant]
     Dosage: UNKNOWN

REACTIONS (3)
  - Abdominal pain [Recovered/Resolved]
  - Nausea [Recovered/Resolved]
  - Diarrhoea [Unknown]
